FAERS Safety Report 25495395 (Version 1)
Quarter: 2025Q2

REPORT INFORMATION
  Report Type: Spontaneous
  Country: US (occurrence: US)
  Receive Date: 20250630
  Receipt Date: 20250630
  Transmission Date: 20250717
  Serious: No
  Sender: FOUNDATION CONSUMER HEALTHCARE
  Company Number: US-FOUNDATIONCONSUMERHC-2025-US-005179

PATIENT
  Age: 35 Year
  Sex: Female
  Weight: 83.46 kg

DRUGS (3)
  1. PLAN B ONE-STEP [Suspect]
     Active Substance: LEVONORGESTREL
     Indication: Post coital contraception
     Route: 048
     Dates: start: 20250119, end: 20250119
  2. METOPROLOL [Concomitant]
     Active Substance: METOPROLOL
  3. NITROFURANTOIN [Suspect]
     Active Substance: NITROFURANTOIN
     Dates: start: 20250124, end: 20250125

REACTIONS (3)
  - Abdominal pain [Not Recovered/Not Resolved]
  - Vaginal haemorrhage [Not Recovered/Not Resolved]
  - Urinary tract infection [Unknown]

NARRATIVE: CASE EVENT DATE: 20250119
